FAERS Safety Report 20617797 (Version 1)
Quarter: 2022Q1

REPORT INFORMATION
  Report Type: Report from Study
  Country: BR (occurrence: BR)
  Receive Date: 20220321
  Receipt Date: 20220321
  Transmission Date: 20220424
  Serious: Yes (Other)
  Sender: FDA-Public Use
  Company Number: BR-JNJFOC-20220339408

PATIENT
  Age: 42 Year
  Sex: Female
  Weight: 80 kg

DRUGS (1)
  1. INFLIXIMAB [Suspect]
     Active Substance: INFLIXIMAB
     Indication: Colitis ulcerative
     Route: 042
     Dates: start: 202101, end: 20211222

REACTIONS (9)
  - Thrombosis [Unknown]
  - Pneumonia [Unknown]
  - COVID-19 [Unknown]
  - Hypersensitivity [Unknown]
  - Infusion related reaction [Unknown]
  - Pain in extremity [Unknown]
  - Drug specific antibody [Unknown]
  - Off label use [Unknown]
  - Product use issue [Unknown]

NARRATIVE: CASE EVENT DATE: 20210101
